FAERS Safety Report 6367254-6 (Version None)
Quarter: 2009Q3

REPORT INFORMATION
  Report Type: 
  Country: None (occurrence: None)
  Receive Date: 20090821
  Receipt Date: 20090507
  Transmission Date: 20100115
  Serious: No
  Sender: FDA-Public Use
  Company Number: 8044863

PATIENT
  Age: 54 Year
  Sex: Female
  Weight: 66.6 kg

DRUGS (6)
  1. CIMZIA [Suspect]
     Indication: CROHN'S DISEASE
     Dosage: 400 MG SC
     Route: 058
     Dates: start: 20090325
  2. DIOVAN [Concomitant]
  3. PROTONIX /01263201/ [Concomitant]
  4. PERCOCET [Concomitant]
  5. FOLIC ACID [Concomitant]
  6. VITAMIN B-12 [Concomitant]

REACTIONS (2)
  - GASTROENTERITIS VIRAL [None]
  - VISION BLURRED [None]
